FAERS Safety Report 6882008-X (Version None)
Quarter: 2010Q3

REPORT INFORMATION
  Report Type: 
  Country: None (occurrence: None)
  Receive Date: 20100729
  Receipt Date: 20100720
  Transmission Date: 20110219
  Serious: Yes (Other)
  Sender: FDA-Public Use
  Company Number: US-PFIZER INC-2010091494

PATIENT
  Sex: Female
  Weight: 95 kg

DRUGS (8)
  1. SOMAVERT [Suspect]
     Indication: ACROMEGALY
     Dosage: 10 MG, UNK
     Dates: start: 20100401
  2. SOMAVERT [Suspect]
     Dosage: 20 MG, UNK
     Dates: start: 20100601
  3. METOPROLOL [Concomitant]
     Indication: HYPERTENSION
     Dosage: 50 MG, 1X/DAY
  4. HYDROCHLOROTHIAZIDE [Concomitant]
     Dosage: 25 MG, 1X/DAY
  5. VITAMIN B COMPLEX CAP [Concomitant]
     Dosage: UNK
  6. MAGNESIUM [Concomitant]
     Dosage: 250 MG, 1X/DAY
  7. CALCIUM [Concomitant]
     Dosage: UNK, AS NEEDED
  8. VITAMIN D [Concomitant]
     Dosage: UNK, AS NEEDED

REACTIONS (3)
  - BLOOD POTASSIUM DECREASED [None]
  - INSULIN-LIKE GROWTH FACTOR INCREASED [None]
  - LABORATORY TEST ABNORMAL [None]
